FAERS Safety Report 7359846-2 (Version None)
Quarter: 2011Q1

REPORT INFORMATION
  Report Type: 
  Country: None (occurrence: None)
  Receive Date: 20110307
  Receipt Date: 20110225
  Transmission Date: 20110831
  Serious: Yes (Hospitalization)
  Sender: FDA-Public Use
  Company Number: 8048698

PATIENT
  Sex: Female
  Weight: 68.5 kg

DRUGS (24)
  1. HYDROCODONE BITARTRATE [Concomitant]
  2. KLOR-CON [Concomitant]
  3. LUMIGAN [Concomitant]
  4. GLUCOSAMINE/CHONDROITIN /01625901/ [Concomitant]
  5. AMLODIPINE [Concomitant]
  6. NEXIUM [Concomitant]
  7. METOPROLOL SUCCINATE [Concomitant]
  8. LOVAZA [Concomitant]
  9. CERTOLIZUMAB PEGOL [Suspect]
     Indication: RHEUMATOID ARTHRITIS
     Dosage: (SUBCUTANEOUS)
     Route: 058
     Dates: start: 20090311
  10. METHOTREXATE [Concomitant]
  11. FOLIC ACID [Concomitant]
  12. LEVOTHYROXINE SODIUM [Concomitant]
  13. LIPITOR [Concomitant]
  14. IRON [Concomitant]
  15. NITROGLYCERIN [Concomitant]
  16. SPIRIVA [Concomitant]
  17. FLUTICASONE PROPIONATE W/SALMETEROL XINAFOATE [Concomitant]
  18. LOSARTAN POTASSIUM AND HYDROCHLOROTHIAZIDE [Concomitant]
  19. ALPRAZOLAM [Concomitant]
  20. VITAMIN E [Concomitant]
  21. CALCIUM [Concomitant]
  22. FUROSEMIDE [Concomitant]
  23. ASPIRIN [Concomitant]
  24. ZINC [Concomitant]

REACTIONS (6)
  - BLADDER PROLAPSE [None]
  - PNEUMONIA [None]
  - LIVER FUNCTION TEST ABNORMAL [None]
  - PNEUMOTHORAX [None]
  - RENAL FAILURE [None]
  - CARDIAC FAILURE CONGESTIVE [None]
